FAERS Safety Report 14355892 (Version 1)
Quarter: 2018Q1

REPORT INFORMATION
  Report Type: Spontaneous
  Country: GB (occurrence: GB)
  Receive Date: 20180105
  Receipt Date: 20180105
  Transmission Date: 20180509
  Serious: Yes (Other)
  Sender: FDA-Public Use
  Company Number: GB-BAYER-2018-000346

PATIENT
  Age: 38 Year
  Sex: Female

DRUGS (6)
  1. ACETYLSALICYLIC ACID({=100 MG) [Suspect]
     Active Substance: ASPIRIN
     Indication: ANTIPLATELET THERAPY
  2. TICAGRELOR. [Concomitant]
     Active Substance: TICAGRELOR
     Indication: ANTIPLATELET THERAPY
  3. CLOPIDOGREL [Concomitant]
     Active Substance: CLOPIDOGREL BISULFATE
     Indication: ANTIPLATELET THERAPY
  4. CLEXANE [Concomitant]
     Active Substance: ENOXAPARIN SODIUM
  5. GTN [Concomitant]
     Active Substance: NITROGLYCERIN
     Indication: DYSPNOEA
  6. GTN [Concomitant]
     Active Substance: NITROGLYCERIN
     Indication: CHEST DISCOMFORT

REACTIONS (2)
  - Exposure during pregnancy [None]
  - Caesarean section [None]
